FAERS Safety Report 10935246 (Version 1)
Quarter: 2015Q1

REPORT INFORMATION
  Report Type: Spontaneous
  Country: US (occurrence: US)
  Receive Date: 20150320
  Receipt Date: 20150320
  Transmission Date: 20150721
  Serious: Yes (Other)
  Sender: FDA-Public Use
  Company Number: US-ELI_LILLY_AND_COMPANY-US201503005351

PATIENT
  Sex: Male

DRUGS (3)
  1. DOCETAXEL. [Concomitant]
     Active Substance: DOCETAXEL
     Indication: PRODUCT USED FOR UNKNOWN INDICATION
     Dosage: UNK, UNKNOWN
     Route: 065
  2. CYRAMZA [Suspect]
     Active Substance: RAMUCIRUMAB
     Dosage: 8 MG/KG, UNKNOWN
     Route: 065
  3. CYRAMZA [Suspect]
     Active Substance: RAMUCIRUMAB
     Indication: LUNG NEOPLASM MALIGNANT
     Dosage: 10 MG/KG, UNKNOWN
     Route: 065
     Dates: start: 20150224

REACTIONS (1)
  - Stomatitis [Recovering/Resolving]

NARRATIVE: CASE EVENT DATE: 20150303
